FAERS Safety Report 12644479 (Version 1)
Quarter: 2016Q3

REPORT INFORMATION
  Report Type: Spontaneous
  Country: US (occurrence: US)
  Receive Date: 20160811
  Receipt Date: 20160811
  Transmission Date: 20161109
  Serious: No
  Sender: FDA-Public Use
  Company Number: US-B.I. PHARMACEUTICALS,INC./RIDGEFIELD-2016-BI-48348BP

PATIENT
  Sex: Female

DRUGS (16)
  1. PRAVASTATIN. [Concomitant]
     Active Substance: PRAVASTATIN
     Indication: BLOOD CHOLESTEROL INCREASED
     Dosage: 40 MG
     Route: 065
     Dates: start: 2014
  2. PRILOSEC [Concomitant]
     Active Substance: OMEPRAZOLE MAGNESIUM
     Indication: GASTROOESOPHAGEAL REFLUX DISEASE
     Dosage: 20 MG
     Route: 065
     Dates: start: 2006
  3. ALBUTEROL. [Concomitant]
     Active Substance: ALBUTEROL
     Indication: CHRONIC OBSTRUCTIVE PULMONARY DISEASE
     Route: 065
  4. LOPRESSOR [Concomitant]
     Active Substance: METOPROLOL TARTRATE
     Indication: HYPERTENSION
     Dosage: 25 MG
     Route: 065
     Dates: start: 2011
  5. PERCOCET [Concomitant]
     Active Substance: ACETAMINOPHEN\OXYCODONE HYDROCHLORIDE
     Indication: PAIN
     Dosage: 10 RT
     Route: 065
     Dates: start: 2006
  6. FLEXERIL [Concomitant]
     Active Substance: CYCLOBENZAPRINE HYDROCHLORIDE
     Indication: SLEEP DISORDER
     Dosage: 5 MG
     Route: 065
     Dates: start: 2015
  7. LASIX [Concomitant]
     Active Substance: FUROSEMIDE
     Indication: CHRONIC OBSTRUCTIVE PULMONARY DISEASE
     Dosage: 20 MG
     Route: 065
     Dates: start: 2000
  8. ELAVIL [Concomitant]
     Active Substance: AMITRIPTYLINE HYDROCHLORIDE
     Indication: SLEEP DISORDER
     Dosage: 50 MG
     Route: 065
     Dates: start: 2015
  9. PROAIR HFA [Concomitant]
     Active Substance: ALBUTEROL SULFATE
     Indication: CHRONIC OBSTRUCTIVE PULMONARY DISEASE
     Dosage: 2 ANZ
     Route: 055
  10. NEURONTIN [Concomitant]
     Active Substance: GABAPENTIN
     Indication: PAIN
     Dosage: 300 MG
     Route: 065
     Dates: start: 2008
  11. NEURONTIN [Concomitant]
     Active Substance: GABAPENTIN
     Indication: ARTHRITIS
  12. DILTIAZEM. [Concomitant]
     Active Substance: DILTIAZEM
     Indication: HYPERTENSION
     Route: 065
     Dates: start: 2008
  13. COUMADIN [Concomitant]
     Active Substance: WARFARIN SODIUM
     Indication: ATRIAL FIBRILLATION
     Dosage: 3.5 MG
     Route: 065
     Dates: start: 2008
  14. SPIRIVA [Suspect]
     Active Substance: TIOTROPIUM BROMIDE MONOHYDRATE
     Indication: CHRONIC OBSTRUCTIVE PULMONARY DISEASE
     Dosage: 18 MCG
     Route: 055
     Dates: start: 20120423
  15. POTASSIUM [Concomitant]
     Active Substance: POTASSIUM
     Indication: FLUID RETENTION
     Dosage: 20 MEQ
     Route: 065
     Dates: start: 2000
  16. OXYCONTIN [Concomitant]
     Active Substance: OXYCODONE HYDROCHLORIDE
     Indication: PAIN
     Dosage: 30 MG
     Route: 065
     Dates: start: 2006

REACTIONS (7)
  - Joint injury [Recovered/Resolved]
  - Musculoskeletal discomfort [Recovered/Resolved]
  - Upper limb fracture [Unknown]
  - Scapula fracture [Recovered/Resolved]
  - Unevaluable event [Unknown]
  - Hip arthroplasty [Unknown]
  - Joint injury [Recovered/Resolved]

NARRATIVE: CASE EVENT DATE: 2013
